FAERS Safety Report 6120238-5 (Version None)
Quarter: 2009Q1

REPORT INFORMATION
  Report Type: 
  Country: None (occurrence: None)
  Receive Date: 20090312
  Receipt Date: 20090304
  Transmission Date: 20090719
  Serious: No
  Sender: FDA-Public Use
  Company Number: APP200900118

PATIENT
  Age: 44 Year
  Sex: Female

DRUGS (2)
  1. HEPARIN SODIUM INJECTION [Suspect]
     Indication: THROMBOSIS PROPHYLAXIS
     Dosage: 5000 USP UNITS, ONCE, SUBCUTANEOUS
     Route: 058
     Dates: start: 20090226, end: 20090226
  2. PROGESTERONE [Concomitant]

REACTIONS (8)
  - CHILLS [None]
  - DIZZINESS [None]
  - FALL [None]
  - FEELING HOT [None]
  - FLUSHING [None]
  - NAUSEA [None]
  - SUDDEN HEARING LOSS [None]
  - SYNCOPE [None]
